FAERS Safety Report 7923043 (Version 2)
Quarter: 2013Q4

REPORT INFORMATION
  Report Type: Spontaneous
  Country: JP (occurrence: JP)
  Receive Date: 20110429
  Receipt Date: 20131104
  Transmission Date: 20140711
  Serious: Yes (Death)
  Sender: FDA-Public Use
  Company Number: JP-ELI_LILLY_AND_COMPANY-JP201104005996

PATIENT
  Sex: 0

DRUGS (2)
  1. GEMZAR [Suspect]
     Indication: TRANSITIONAL CELL CARCINOMA
     Dosage: DAY 1,8,15
     Route: 042
  2. DOCETAXEL [Concomitant]
     Indication: TRANSITIONAL CELL CARCINOMA
     Dosage: DAY 1

REACTIONS (1)
  - Acute myocardial infarction [Fatal]
